FAERS Safety Report 5642308-8 (Version None)
Quarter: 2008Q1

REPORT INFORMATION
  Report Type: 
  Country: None (occurrence: None)
  Receive Date: 20080225
  Receipt Date: 20080211
  Transmission Date: 20080703
  Serious: Yes (Other)
  Sender: FDA-Public Use
  Company Number: 023641

PATIENT
  Age: 18 Year
  Sex: Male
  Weight: 77.1 kg

DRUGS (2)
  1. CLARAVIS [Suspect]
     Indication: ACNE
     Dosage: 20 MG, BID, ORAL : 40 MG, BID, ORAL
     Route: 048
     Dates: end: 20080101
  2. CLARAVIS [Suspect]
     Indication: ACNE
     Dosage: 20 MG, BID, ORAL : 40 MG, BID, ORAL
     Route: 048
     Dates: start: 20070901

REACTIONS (7)
  - ARTHRALGIA [None]
  - DECREASED INTEREST [None]
  - DEPRESSION [None]
  - DRY SKIN [None]
  - EPISTAXIS [None]
  - MYALGIA [None]
  - SUICIDAL IDEATION [None]
